FAERS Safety Report 24794727 (Version 1)
Quarter: 2024Q4

REPORT INFORMATION
  Report Type: Spontaneous
  Country: CA (occurrence: CA)
  Receive Date: 20241231
  Receipt Date: 20241231
  Transmission Date: 20250115
  Serious: Yes (Other)
  Sender: PFIZER
  Company Number: CA-PFIZER INC-202400070631

PATIENT
  Age: 75 Year
  Sex: Female

DRUGS (20)
  1. RUXIENCE [Suspect]
     Active Substance: RITUXIMAB-PVVR
     Indication: Rheumatoid arthritis
     Dosage: 1000 MG, DAY 1, DAY 15
     Route: 042
     Dates: start: 20220613, end: 20220621
  2. RUXIENCE [Suspect]
     Active Substance: RITUXIMAB-PVVR
     Dosage: 1000 MG, DAY 1, DAY 15
     Route: 042
     Dates: start: 20230213, end: 20230227
  3. RUXIENCE [Suspect]
     Active Substance: RITUXIMAB-PVVR
     Dosage: 1000 MG, DAY 1, DAY 15
     Route: 042
     Dates: start: 20230814, end: 20230829
  4. RUXIENCE [Suspect]
     Active Substance: RITUXIMAB-PVVR
     Dosage: 1000 MG, DAY 1, DAY 15
     Route: 042
     Dates: start: 20240305
  5. RUXIENCE [Suspect]
     Active Substance: RITUXIMAB-PVVR
     Dosage: 1000 MG, DAY 1, DAY 15 (2 WEEKS (DAY 15)
     Route: 042
     Dates: start: 20240320
  6. ACETAMINOPHEN [Concomitant]
     Active Substance: ACETAMINOPHEN
     Indication: Premedication
     Dosage: UNK
     Dates: start: 20240320, end: 20240320
  7. AMLODIPINE [Concomitant]
     Active Substance: AMLODIPINE BESYLATE
     Dosage: UNK
  8. DIPHENHYDRAMINE [Concomitant]
     Active Substance: DIPHENHYDRAMINE
     Indication: Premedication
     Dosage: UNK
     Dates: start: 20240320, end: 20240320
  9. ENBREL [Concomitant]
     Active Substance: ETANERCEPT
     Indication: Rheumatoid arthritis
     Dosage: 1 DF, UNKNOWN DOSE
     Route: 065
  10. DAPAGLIFLOZIN [Concomitant]
     Active Substance: DAPAGLIFLOZIN
     Dosage: UNK
  11. INSULIN NOS [Concomitant]
     Active Substance: INSULIN NOS
     Dosage: UNK
  12. LEVOTHYROXINE [Concomitant]
     Active Substance: LEVOTHYROXINE
     Dosage: UNK
  13. METOPROLOL TARTRATE [Concomitant]
     Active Substance: METOPROLOL TARTRATE
     Dosage: UNK
  14. METHYLPREDNISOLONE [Concomitant]
     Active Substance: METHYLPREDNISOLONE
     Indication: Premedication
     Dosage: UNK
     Dates: start: 20240320, end: 20240320
  15. METFORMIN [Concomitant]
     Active Substance: METFORMIN HYDROCHLORIDE
     Dosage: UNK
  16. RAMIPRIL [Concomitant]
     Active Substance: RAMIPRIL
     Dosage: UNK
  17. RIVAROXABAN [Concomitant]
     Active Substance: RIVAROXABAN
     Dosage: UNK
  18. ROSUVASTATIN CALCIUM [Concomitant]
     Active Substance: ROSUVASTATIN CALCIUM
     Dosage: UNK
  19. TRESIBA [Concomitant]
     Active Substance: INSULIN DEGLUDEC
     Dosage: UNK
  20. VITAMIN B12 [Concomitant]
     Active Substance: CYANOCOBALAMIN
     Dosage: UNK

REACTIONS (6)
  - Blood pressure abnormal [Not Recovered/Not Resolved]
  - Ankle fracture [Recovered/Resolved]
  - Fall [Recovered/Resolved]
  - Blood pressure fluctuation [Unknown]
  - Dizziness [Unknown]
  - Hypotension [Unknown]

NARRATIVE: CASE EVENT DATE: 20240101
